FAERS Safety Report 5880702-0 (Version None)
Quarter: 2008Q3

REPORT INFORMATION
  Report Type: 
  Country: None (occurrence: None)
  Receive Date: 20080911
  Receipt Date: 20080829
  Transmission Date: 20090109
  Serious: Yes (Death, Other)
  Sender: FDA-Public Use
  Company Number: 2008002160

PATIENT
  Age: 66 Year
  Sex: Male

DRUGS (5)
  1. ERLOTINIB (ERLOTINIB) (TABLET) (ERLOTINIB) [Suspect]
     Indication: LUNG ADENOCARCINOMA
     Dosage: (150 MG,QD), ORAL
     Route: 048
     Dates: start: 20080702, end: 20080724
  2. MAGLAX HYPEN (ETODOLAC) [Concomitant]
  3. PURSENNID (SENNA LEAF) [Concomitant]
  4. MUCOSTA (REBAMIPIDE) [Concomitant]
  5. JUVELA (TOCOPHEROL) [Concomitant]

REACTIONS (2)
  - HYPONATRAEMIA [None]
  - MALIGNANT NEOPLASM PROGRESSION [None]
